FAERS Safety Report 20411250 (Version 1)
Quarter: 2022Q1

REPORT INFORMATION
  Report Type: Spontaneous
  Country: US (occurrence: None)
  Receive Date: 20220201
  Receipt Date: 20220201
  Transmission Date: 20220423
  Serious: Yes (Life-Threatening, Hospitalization)
  Sender: FDA-Public Use
  Company Number: None

PATIENT
  Age: 62 Year
  Sex: Male

DRUGS (1)
  1. IOHEXOL [Suspect]
     Active Substance: IOHEXOL
     Dosage: 98 ML ONCE IV?
     Route: 042
     Dates: start: 20210908, end: 20210908

REACTIONS (2)
  - Anaphylactic reaction [None]
  - Arteriospasm coronary [None]

NARRATIVE: CASE EVENT DATE: 20210908
